FAERS Safety Report 5015598-2 (Version None)
Quarter: 2006Q2

REPORT INFORMATION
  Report Type: 
  Country: None (occurrence: None)
  Receive Date: 20060525
  Receipt Date: 20060512
  Transmission Date: 20061013
  Serious: Yes (Hospitalization, Disabling)
  Sender: FDA-Public Use
  Company Number: 2217-93

PATIENT
  Age: 20 Year
  Sex: Male
  Weight: 54.4316 kg

DRUGS (4)
  1. AZMACORT [Suspect]
     Indication: NASOPHARYNGITIS
     Dates: start: 20050801, end: 20050801
  2. ALBUTEROL [Suspect]
     Indication: NASOPHARYNGITIS
     Dates: start: 20050801, end: 20050801
  3. ZITHROMAX [Suspect]
     Indication: NASOPHARYNGITIS
     Dates: start: 20050801, end: 20050801
  4. UNKNOWN ANTIHISTAMINE MEDICATION [Concomitant]
     Indication: DRUG THERAPY
     Dates: start: 20050801, end: 20050801

REACTIONS (5)
  - CARDIAC VALVE DISEASE [None]
  - CHEST PAIN [None]
  - DRUG INTERACTION [None]
  - HEART RATE IRREGULAR [None]
  - IMPAIRED WORK ABILITY [None]
